FAERS Safety Report 17270043 (Version 2)
Quarter: 2020Q1

REPORT INFORMATION
  Report Type: Report from Study
  Country: US (occurrence: US)
  Receive Date: 20200114
  Receipt Date: 20200121
  Transmission Date: 20200409
  Serious: No
  Sender: FDA-Public Use
  Company Number: NVSC2020US007180

PATIENT
  Age: 26 Year
  Sex: Male
  Weight: 63 kg

DRUGS (5)
  1. IMIPENEM AND CILASTATIN [Concomitant]
     Active Substance: CILASTATIN SODIUM\IMIPENEM
     Indication: MYCOBACTERIUM ABSCESSUS INFECTION
     Dosage: 500 MG
     Route: 065
     Dates: start: 20190905
  2. AZITHROMYCIN ANHYDROUS. [Concomitant]
     Active Substance: AZITHROMYCIN ANHYDROUS
     Indication: MYCOBACTERIUM ABSCESSUS INFECTION
     Dosage: 250 MG
     Route: 065
     Dates: start: 20190913
  3. AMIKACIN. [Concomitant]
     Active Substance: AMIKACIN
     Indication: MYCOBACTERIUM ABSCESSUS INFECTION
     Dosage: 1750 MG
     Route: 065
     Dates: start: 20191114, end: 20200107
  4. LAMPRENE [Suspect]
     Active Substance: CLOFAZIMINE
     Indication: MYCOBACTERIUM ABSCESSUS INFECTION
     Dosage: 100 MG
     Route: 048
     Dates: start: 20191015
  5. LAMPRENE [Suspect]
     Active Substance: CLOFAZIMINE
     Dosage: 50 MG, QD
     Route: 048
     Dates: start: 20200107

REACTIONS (1)
  - Liver function test abnormal [Recovering/Resolving]

NARRATIVE: CASE EVENT DATE: 20191230
